FAERS Safety Report 5994430-4 (Version None)
Quarter: 2008Q4

REPORT INFORMATION
  Report Type: 
  Country: None (occurrence: None)
  Receive Date: 20081212
  Receipt Date: 20080909
  Transmission Date: 20090506
  Serious: No
  Sender: FDA-Public Use
  Company Number: US-ABBOTT-08P-163-0475239-00

PATIENT

DRUGS (11)
  1. HUMIRA [Suspect]
     Indication: RHEUMATOID ARTHRITIS
     Route: 058
     Dates: start: 20070101, end: 20080701
  2. HUMIRA [Suspect]
     Route: 048
     Dates: start: 20080906
  3. METHOTREXATE [Concomitant]
     Indication: RHEUMATOID ARTHRITIS
     Route: 048
  4. PLAQUENIL [Concomitant]
     Indication: DRUG USE FOR UNKNOWN INDICATION
     Route: 048
  5. CLOMAZAPAM [Concomitant]
     Indication: PANIC DISORDER
     Route: 048
  6. SERTRALINE [Concomitant]
     Indication: PAIN
     Route: 048
  7. ATORVASTATIN CALCIUM [Concomitant]
     Indication: BLOOD CHOLESTEROL INCREASED
     Route: 048
  8. FOLIC ACID [Concomitant]
     Indication: DRUG USE FOR UNKNOWN INDICATION
     Route: 048
  9. PREDNISONE TAB [Concomitant]
     Indication: RHEUMATOID ARTHRITIS
     Route: 048
     Dates: start: 20020101
  10. OLMESARTAN MEDOXOMIL [Concomitant]
     Indication: BLOOD PRESSURE
     Dosage: 20/12.5 MG, 1 IN 1 D
     Route: 048
  11. CALCIUM CARBONATE [Concomitant]
     Indication: OSTEOPENIA
     Route: 048

REACTIONS (2)
  - GAIT DISTURBANCE [None]
  - PAIN [None]
